FAERS Safety Report 14148069 (Version 2)
Quarter: 2018Q1

REPORT INFORMATION
  Report Type: Report from Study
  Country: JP (occurrence: JP)
  Receive Date: 20171101
  Receipt Date: 20180131
  Transmission Date: 20180508
  Serious: Yes (Hospitalization, Other)
  Sender: FDA-Public Use
  Company Number: JP-ACTELION-A-CH2017-151152

PATIENT
  Age: 1 Year
  Sex: Male
  Weight: 8.42 kg

DRUGS (22)
  1. UPTRAVI [Suspect]
     Active Substance: SELEXIPAG
     Dosage: 5 ?G, BID
     Route: 048
     Dates: start: 20170803, end: 20170804
  2. UPTRAVI [Suspect]
     Active Substance: SELEXIPAG
     Dosage: 10 ?G, BID
     Route: 048
     Dates: start: 20170806, end: 20170806
  3. ALDACTONE A [Concomitant]
     Active Substance: SPIRONOLACTONE
     Indication: CARDIAC FAILURE
     Dosage: 15 MG, QD
     Route: 051
     Dates: end: 20170801
  4. CEFAZOLIN [Concomitant]
     Active Substance: CEFAZOLIN
     Indication: DEVICE RELATED INFECTION
     Dosage: 600 MG, QD
     Route: 042
     Dates: start: 20170508, end: 20170509
  5. UPTRAVI [Suspect]
     Active Substance: SELEXIPAG
     Indication: PULMONARY ARTERIAL HYPERTENSION
     Dosage: 9 ?G, BID
     Route: 048
     Dates: start: 20170316, end: 20170412
  6. UPTRAVI [Suspect]
     Active Substance: SELEXIPAG
     Dosage: 7.5 ?G, BID
     Route: 048
     Dates: start: 20170805, end: 20170805
  7. OPSUMIT [Concomitant]
     Active Substance: MACITENTAN
     Indication: PULMONARY ARTERIAL HYPERTENSION
     Dosage: 1.6 MG, QD
     Route: 051
     Dates: end: 20170801
  8. ADCIRCA [Concomitant]
     Active Substance: TADALAFIL
     Indication: PULMONARY ARTERIAL HYPERTENSION
     Dosage: 8 MG, QD
     Route: 051
     Dates: end: 20170801
  9. FAMOTIDINE. [Concomitant]
     Active Substance: FAMOTIDINE
     Indication: UPPER GASTROINTESTINAL HAEMORRHAGE
     Dosage: 4 MG, QD
     Route: 051
     Dates: end: 20170801
  10. LANSOPRAZOLE. [Concomitant]
     Active Substance: LANSOPRAZOLE
     Indication: UPPER GASTROINTESTINAL HAEMORRHAGE
     Dosage: 4.5 MG, QD
     Route: 051
     Dates: end: 20170801
  11. FERRIC PYROPHOSPHATE [Concomitant]
     Active Substance: FERRIC PYROPHOSPHATE
     Indication: IRON DEFICIENCY ANAEMIA
     Dosage: 8 ML, QD
     Route: 051
     Dates: end: 20170801
  12. WARFARIN [Concomitant]
     Active Substance: WARFARIN
     Indication: VASCULAR STENT THROMBOSIS
     Dosage: 2.1 MG, QD
     Route: 051
     Dates: end: 20170801
  13. VANCOMYCIN [Concomitant]
     Active Substance: VANCOMYCIN
     Indication: CELLULITIS
     Dosage: 420 MG, QD
     Route: 042
     Dates: start: 20170213, end: 20170217
  14. HEPARIN [Concomitant]
     Active Substance: HEPARIN SODIUM
     Indication: ANTICOAGULANT THERAPY
     Dosage: 5760 IU, QD
     Route: 042
     Dates: start: 20170519, end: 20170523
  15. MOSAPRIDE CITRATE [Concomitant]
     Active Substance: MOSAPRIDE CITRATE
     Indication: GASTROOESOPHAGEAL REFLUX DISEASE
     Dosage: 2 MG, QD
     Route: 051
     Dates: end: 20170801
  16. CARBOCISTEINE [Concomitant]
     Active Substance: CARBOCYSTEINE
     Indication: UPPER RESPIRATORY TRACT INFLAMMATION
     Dosage: 200 MG, QD
     Route: 051
     Dates: end: 20170801
  17. FUROSEMIDE. [Concomitant]
     Active Substance: FUROSEMIDE
     Indication: CARDIAC FAILURE
     Dosage: 15 MG, QD
     Route: 051
     Dates: end: 20170801
  18. POTASSIUM CHLORIDE. [Concomitant]
     Active Substance: POTASSIUM CHLORIDE
     Indication: HYPOKALAEMIA
     Dosage: 0.4 G, QD
     Route: 051
     Dates: end: 20170801
  19. UPTRAVI [Suspect]
     Active Substance: SELEXIPAG
     Dosage: 8 ?G, BID
     Route: 048
     Dates: start: 20170206, end: 20170315
  20. UPTRAVI [Suspect]
     Active Substance: SELEXIPAG
     Dosage: 9.5 ?G, BID
     Route: 048
     Dates: start: 20170413, end: 20170801
  21. UPTRAVI [Suspect]
     Active Substance: SELEXIPAG
     Dosage: 20 ?G, BID
     Route: 048
     Dates: start: 20170807
  22. HYDROCHLOROTHIAZIDE. [Concomitant]
     Active Substance: HYDROCHLOROTHIAZIDE
     Indication: CARDIAC FAILURE
     Dosage: 7.5 MG, QD
     Route: 051
     Dates: end: 20170801

REACTIONS (5)
  - Adenoidal hypertrophy [Recovering/Resolving]
  - Erythromelalgia [Recovering/Resolving]
  - Adenoidectomy [Unknown]
  - Pneumonia [Recovering/Resolving]
  - Femur fracture [Recovering/Resolving]

NARRATIVE: CASE EVENT DATE: 2017
